FAERS Safety Report 19038559 (Version 2)
Quarter: 2021Q2

REPORT INFORMATION
  Report Type: Spontaneous
  Country: AU (occurrence: AU)
  Receive Date: 20210322
  Receipt Date: 20210415
  Transmission Date: 20210717
  Serious: Yes (Life-Threatening, Hospitalization, Other)
  Sender: FDA-Public Use
  Company Number: AU-ENDO PHARMACEUTICALS INC-2021-001721

PATIENT
  Age: 25 Year
  Sex: Male

DRUGS (1)
  1. AVEED [Suspect]
     Active Substance: TESTOSTERONE UNDECANOATE
     Indication: KLINEFELTER^S SYNDROME
     Dosage: 1000 MG, EVERY 3 MONTHS
     Route: 030

REACTIONS (6)
  - Pneumomediastinum [Recovered/Resolved]
  - Pneumopericardium [Recovered/Resolved]
  - Polycythaemia [Recovered/Resolved]
  - Pulmonary hypertension [Recovered/Resolved]
  - Respiratory failure [Recovered/Resolved]
  - Pulmonary embolism [Recovered/Resolved]
